FAERS Safety Report 7418751-3 (Version None)
Quarter: 2011Q2

REPORT INFORMATION
  Report Type: 
  Country: None (occurrence: None)
  Receive Date: 20110415
  Receipt Date: 20110413
  Transmission Date: 20111010
  Serious: Yes (Other)
  Sender: FDA-Public Use
  Company Number: US-PFIZER INC-2011014270

PATIENT
  Sex: Male

DRUGS (2)
  1. VICODIN [Concomitant]
     Indication: PAIN
     Dosage: UNK
     Dates: start: 20070501, end: 20110201
  2. CHANTIX [Suspect]
     Indication: SMOKING CESSATION THERAPY
     Dosage: STARTER PAKS
     Dates: start: 20080101, end: 20090301

REACTIONS (7)
  - LOSS OF CONSCIOUSNESS [None]
  - NIGHTMARE [None]
  - SUICIDAL IDEATION [None]
  - DEPRESSION [None]
  - AGGRESSION [None]
  - MULTIPLE INJURIES [None]
  - MOOD SWINGS [None]
